FAERS Safety Report 17774102 (Version 1)
Quarter: 2020Q2

REPORT INFORMATION
  Report Type: Spontaneous
  Country: CA (occurrence: CA)
  Receive Date: 20200513
  Receipt Date: 20200513
  Transmission Date: 20200714
  Serious: Yes (Death, Hospitalization, Other)
  Sender: FDA-Public Use
  Company Number: CA-SA-2020SA122698

PATIENT
  Age: 67 Year
  Sex: Male
  Weight: 118 kg

DRUGS (10)
  1. FLOMAX [Suspect]
     Active Substance: TAMSULOSIN HYDROCHLORIDE
     Indication: NEUROENDOCRINE TUMOUR
     Dosage: 0.8 MG, QD
     Route: 048
  2. DILAUDID [Concomitant]
     Active Substance: HYDROMORPHONE HYDROCHLORIDE
     Dosage: UNK
     Route: 065
  3. AMITRIPTYLINE [Concomitant]
     Active Substance: AMITRIPTYLINE
     Dosage: UNK
     Route: 065
  4. VITAMIN B6 [Concomitant]
     Active Substance: PYRIDOXINE HYDROCHLORIDE
     Dosage: UNK
     Route: 065
  5. OCTREOTIDE. [Suspect]
     Active Substance: OCTREOTIDE
     Indication: NEUROENDOCRINE TUMOUR
     Dosage: 20 MG, QM
     Route: 030
  6. PREDNISONE. [Concomitant]
     Active Substance: PREDNISONE
     Dosage: UNK
     Route: 065
  7. THIAMINE HYDROCHLORIDE. [Concomitant]
     Active Substance: THIAMINE HYDROCHLORIDE
     Dosage: UNK
     Route: 065
  8. LOPERAMIDE [Concomitant]
     Active Substance: LOPERAMIDE
     Dosage: UNK
     Route: 065
  9. PREGABALIN. [Suspect]
     Active Substance: PREGABALIN
     Indication: NEUROENDOCRINE TUMOUR
     Dosage: 300 MG, BID
     Route: 048
  10. CYANOCOBALAMIN. [Concomitant]
     Active Substance: CYANOCOBALAMIN
     Dosage: UNK
     Route: 065

REACTIONS (28)
  - Irritable bowel syndrome [Fatal]
  - Blood pressure systolic increased [Fatal]
  - Emotional distress [Fatal]
  - Lymphoedema [Fatal]
  - Skin lesion [Fatal]
  - Skin tightness [Fatal]
  - Peripheral swelling [Fatal]
  - Dysbiosis [Fatal]
  - Skin fissures [Fatal]
  - Pain [Fatal]
  - Back pain [Fatal]
  - Malaise [Fatal]
  - Weight increased [Fatal]
  - Needle issue [Unknown]
  - Anxiety [Fatal]
  - Apathy [Fatal]
  - Pain in extremity [Fatal]
  - Scratch [Fatal]
  - Fall [Fatal]
  - Oedema peripheral [Fatal]
  - Gait disturbance [Fatal]
  - Body temperature decreased [Fatal]
  - Diarrhoea [Fatal]
  - Drug ineffective for unapproved indication [Unknown]
  - Erythema [Fatal]
  - Localised oedema [Fatal]
  - Inflammation [Fatal]
  - Swelling [Fatal]
